FAERS Safety Report 21315725 (Version 1)
Quarter: 2022Q3

REPORT INFORMATION
  Report Type: Spontaneous
  Country: IL (occurrence: IL)
  Receive Date: 20220909
  Receipt Date: 20220909
  Transmission Date: 20221027
  Serious: Yes (Hospitalization)
  Sender: FDA-Public Use
  Company Number: IL-009507513-2209ISR001625

PATIENT
  Age: 68 Year
  Sex: Male

DRUGS (17)
  1. INVANZ [Suspect]
     Active Substance: ERTAPENEM SODIUM
     Dosage: UNK
  2. INVANZ [Concomitant]
     Active Substance: ERTAPENEM SODIUM
  3. AMLODIPINE [Concomitant]
     Active Substance: AMLODIPINE BESYLATE
  4. CILASTATIN [Concomitant]
     Active Substance: CILASTATIN
  5. CADEX [BICALUTAMIDE] [Concomitant]
  6. ELIQUIS [Concomitant]
     Active Substance: APIXABAN
  7. IMIPENEM [Concomitant]
     Active Substance: IMIPENEM
  8. BISACODYL [Concomitant]
     Active Substance: BISACODYL
  9. LIPITOR [Concomitant]
     Active Substance: ATORVASTATIN CALCIUM
  10. MAGNOX [Concomitant]
  11. METHIMAZOLE [Concomitant]
     Active Substance: METHIMAZOLE
  12. NEXIUM [Concomitant]
     Active Substance: ESOMEPRAZOLE MAGNESIUM
  13. PLAVIX [Concomitant]
     Active Substance: CLOPIDOGREL BISULFATE
  14. PREDNISONE [Concomitant]
     Active Substance: PREDNISONE
  15. PROGRAF [Concomitant]
     Active Substance: TACROLIMUS
  16. PROLOL [METOPROLOL TARTRATE] [Concomitant]
  17. SIMVASTATIN [Concomitant]
     Active Substance: SIMVASTATIN

REACTIONS (1)
  - Hepatic enzyme increased [Unknown]
